FAERS Safety Report 8557494-X (Version None)
Quarter: 2012Q3

REPORT INFORMATION
  Report Type: 
  Country: None (occurrence: None)
  Receive Date: 20120801
  Receipt Date: 20120731
  Transmission Date: 20120928
  Serious: Yes (Other)
  Sender: FDA-Public Use
  Company Number: US-TEVA-351183USA

PATIENT
  Sex: Female

DRUGS (4)
  1. SECTRAL [Concomitant]
     Indication: PALPITATIONS
     Dosage: 800 MILLIGRAM;
     Route: 048
  2. AMOXICILLIN [Suspect]
     Dates: start: 20120714, end: 20120714
  3. CLONAZEPAM [Concomitant]
     Indication: ANXIETY
     Dosage: 4 MILLIGRAM;
     Route: 048
  4. TIAZAC [Suspect]
     Indication: HYPERTENSION
     Dosage: 180 MILLIGRAM;
     Route: 048
     Dates: start: 20070101

REACTIONS (2)
  - BLOOD PRESSURE INCREASED [None]
  - PALPITATIONS [None]
